FAERS Safety Report 7630938-3 (Version None)
Quarter: 2011Q3

REPORT INFORMATION
  Report Type: 
  Country: None (occurrence: None)
  Receive Date: 20110725
  Receipt Date: 20110713
  Transmission Date: 20111222
  Serious: Yes (Hospitalization)
  Sender: FDA-Public Use
  Company Number: US-BIOGENIDEC-2011BI021431

PATIENT
  Age: 37 Year
  Sex: Male
  Weight: 65 kg

DRUGS (9)
  1. TYSABRI [Suspect]
     Route: 042
     Dates: start: 20100325
  2. OXYBUTYNIN [Concomitant]
     Indication: URINARY INCONTINENCE
     Route: 048
  3. CARBAMAZEPINE [Concomitant]
     Indication: NEURALGIA
  4. BACLOFEN [Concomitant]
     Indication: MUSCLE SPASTICITY
     Route: 048
  5. GABAPENTIN [Concomitant]
     Indication: ANALGESIC THERAPY
     Route: 048
  6. TYSABRI [Suspect]
     Indication: MULTIPLE SCLEROSIS
     Route: 042
     Dates: start: 20070509, end: 20091112
  7. ESCITALOPRAM [Concomitant]
     Indication: DEPRESSION
  8. NITROFURANTOIN [Concomitant]
     Route: 048
  9. OLANZAPINE [Concomitant]
     Indication: ANXIETY
     Route: 048

REACTIONS (5)
  - AUTOMATIC BLADDER [None]
  - MULTIPLE SCLEROSIS RELAPSE [None]
  - ANXIETY [None]
  - KLEBSIELLA INFECTION [None]
  - URINARY TRACT INFECTION PSEUDOMONAL [None]
